FAERS Safety Report 5861842-9 (Version None)
Quarter: 2008Q3

REPORT INFORMATION
  Report Type: 
  Country: None (occurrence: None)
  Receive Date: 20080826
  Receipt Date: 20080811
  Transmission Date: 20090109
  Serious: Yes (Hospitalization)
  Sender: FDA-Public Use
  Company Number: DSA_32104_2008

PATIENT
  Sex: Female

DRUGS (2)
  1. LORAZEPAM [Suspect]
     Dosage: (50 MG 1X ORAL)
     Route: 048
     Dates: start: 20080704, end: 20080704
  2. ATOSIL /00133602/ (ATOSIL - ISOPROMETHAZINE HYDROCHLORIDE) (NOT SPECIF [Suspect]
     Dosage: (25 MG 1X ORAL)
     Route: 048
     Dates: start: 20080704, end: 20080704

REACTIONS (4)
  - FATIGUE [None]
  - GASTROINTESTINAL SOUNDS ABNORMAL [None]
  - MULTIPLE DRUG OVERDOSE INTENTIONAL [None]
  - SUICIDE ATTEMPT [None]
